FAERS Safety Report 25111724 (Version 2)
Quarter: 2025Q1

REPORT INFORMATION
  Report Type: Spontaneous
  Country: JP (occurrence: JP)
  Receive Date: 20250324
  Receipt Date: 20250329
  Transmission Date: 20250409
  Serious: Yes (Life-Threatening)
  Sender: ACCORD
  Company Number: JP-MLMSERVICE-20250306-PI438640-00140-1

PATIENT
  Age: 83 Year
  Sex: Male
  Weight: 58 kg

DRUGS (6)
  1. CISPLATIN [Suspect]
     Active Substance: CISPLATIN
     Indication: Testicular seminoma (pure) stage II
     Dosage: RECEIVED FIRST COURSE AT FULL DOSE, CDDP:20MG/M2X5DAYX1CYCLE
  2. ETOPOSIDE [Suspect]
     Active Substance: ETOPOSIDE
     Indication: Testicular seminoma (pure) stage II
     Dosage: RECEIVED FIRST COURSE AT FULL DOSE, ETOPOSIDE: 100MG/M2X5DAYX1CYCLE
  3. CISPLATIN [Suspect]
     Active Substance: CISPLATIN
     Indication: Testis cancer recurrent
     Dosage: RECEIVED FIRST COURSE AT FULL DOSE, CDDP:20MG/M2X5DAYX1CYCLE
  4. CISPLATIN [Suspect]
     Active Substance: CISPLATIN
     Indication: Metastases to lymph nodes
     Dosage: RECEIVED FIRST COURSE AT FULL DOSE, CDDP:20MG/M2X5DAYX1CYCLE
  5. ETOPOSIDE [Suspect]
     Active Substance: ETOPOSIDE
     Indication: Metastases to lymph nodes
     Dosage: RECEIVED FIRST COURSE AT FULL DOSE, ETOPOSIDE: 100MG/M2X5DAYX1CYCLE
  6. ETOPOSIDE [Suspect]
     Active Substance: ETOPOSIDE
     Indication: Testis cancer recurrent
     Dosage: RECEIVED FIRST COURSE AT FULL DOSE, ETOPOSIDE: 100MG/M2X5DAYX1CYCLE

REACTIONS (2)
  - Febrile neutropenia [Recovered/Resolved]
  - Ileus paralytic [Recovered/Resolved]
